FAERS Safety Report 11705960 (Version 1)
Quarter: 2015Q4

REPORT INFORMATION
  Report Type: Spontaneous
  Country: US (occurrence: US)
  Receive Date: 20151106
  Receipt Date: 20151106
  Transmission Date: 20160304
  Serious: Yes (Hospitalization)
  Sender: FDA-Public Use
  Company Number: US-SA-2015SA172279

PATIENT
  Age: 62 Year
  Sex: Male
  Weight: 97 kg

DRUGS (14)
  1. RANEXA [Suspect]
     Active Substance: RANOLAZINE
     Indication: CORONARY ARTERY DISEASE
     Route: 048
     Dates: start: 20141223, end: 20150908
  2. CLARITIN [Concomitant]
     Active Substance: LORATADINE
     Indication: SEASONAL ALLERGY
  3. ASPIRIN. [Concomitant]
     Active Substance: ASPIRIN
     Indication: CORONARY ARTERY DISEASE
  4. PRILOSEC [Concomitant]
     Active Substance: OMEPRAZOLE MAGNESIUM
     Indication: GASTRITIS
  5. LASIX [Suspect]
     Active Substance: FUROSEMIDE
     Indication: ISCHAEMIC CARDIOMYOPATHY
     Route: 048
     Dates: start: 20141223, end: 20150908
  6. IMDUR [Concomitant]
     Active Substance: ISOSORBIDE MONONITRATE
     Indication: CORONARY ARTERY DISEASE
  7. COREG [Concomitant]
     Active Substance: CARVEDILOL
     Indication: HYPERTENSION
  8. CRESTOR [Concomitant]
     Active Substance: ROSUVASTATIN CALCIUM
     Indication: HYPERLIPIDAEMIA
  9. XANAX [Concomitant]
     Active Substance: ALPRAZOLAM
     Indication: ANXIETY
  10. PLACEBO [Suspect]
     Active Substance: UNSPECIFIED INGREDIENT
     Indication: CARDIOVASCULAR DISORDER
     Route: 058
     Dates: start: 20150903
  11. ZOLOFT [Concomitant]
     Active Substance: SERTRALINE HYDROCHLORIDE
     Indication: DEPRESSION
  12. LOVAZA [Concomitant]
     Active Substance: OMEGA-3-ACID ETHYL ESTERS
     Indication: HYPERTRIGLYCERIDAEMIA
  13. POTASSIUM CHLORIDE. [Suspect]
     Active Substance: POTASSIUM CHLORIDE
     Indication: ISCHAEMIC CARDIOMYOPATHY
     Route: 048
     Dates: start: 20141223, end: 20150908
  14. PAMELOR [Concomitant]
     Active Substance: NORTRIPTYLINE HYDROCHLORIDE
     Indication: DEPRESSION

REACTIONS (3)
  - Syncope [Recovered/Resolved]
  - Bradycardia [Recovered/Resolved]
  - Hypotension [Recovered/Resolved]

NARRATIVE: CASE EVENT DATE: 20150907
